FAERS Safety Report 23540813 (Version 1)
Quarter: 2024Q1

REPORT INFORMATION
  Report Type: Spontaneous
  Country: US (occurrence: US)
  Receive Date: 20240219
  Receipt Date: 20240219
  Transmission Date: 20240410
  Serious: No
  Sender: FDA-Public Use
  Company Number: US-Stemline Therapeutics, Inc.-2023ST005449

PATIENT
  Age: 81 Year
  Sex: Female

DRUGS (18)
  1. ORSERDU [Suspect]
     Active Substance: ELACESTRANT
     Indication: Product used for unknown indication
     Dosage: 345MG ONCE DAILY
     Route: 048
  2. Dialyvite Vitamin D3 Max [Concomitant]
     Indication: Product used for unknown indication
     Route: 048
  3. Biotin Beauty Extra Strength [Concomitant]
     Indication: Product used for unknown indication
     Route: 048
  4. METOPROLOL SUCCINATE [Concomitant]
     Active Substance: METOPROLOL SUCCINATE
     Indication: Product used for unknown indication
     Route: 048
  5. MINERALS\VITAMINS [Concomitant]
     Active Substance: MINERALS\VITAMINS
     Indication: Product used for unknown indication
     Route: 048
  6. FOSAMAX [Concomitant]
     Active Substance: ALENDRONATE SODIUM
     Indication: Product used for unknown indication
     Route: 048
  7. VITAMIN C [Concomitant]
     Active Substance: ASCORBIC ACID
     Indication: Product used for unknown indication
     Route: 048
  8. Citrus Calcium/Vitamin D [Concomitant]
     Indication: Product used for unknown indication
     Route: 048
  9. COENZYME Q10 [Concomitant]
     Active Substance: DIETARY SUPPLEMENT\UBIDECARENONE
     Indication: Product used for unknown indication
     Route: 048
  10. Collagen Ultra [Concomitant]
     Indication: Product used for unknown indication
     Route: 048
  11. FLUTICASONE PROPIONATE [Concomitant]
     Active Substance: FLUTICASONE PROPIONATE
     Indication: Product used for unknown indication
     Route: 045
  12. HIPREX [Concomitant]
     Active Substance: METHENAMINE HIPPURATE
     Indication: Product used for unknown indication
     Route: 048
  13. Daily Multiple Vitamins [Concomitant]
     Indication: Product used for unknown indication
     Route: 048
  14. ONDANSETRON HYDROCHLORIDE [Concomitant]
     Active Substance: ONDANSETRON HYDROCHLORIDE
     Indication: Product used for unknown indication
     Route: 048
  15. SELENIUM [Concomitant]
     Active Substance: SELENIUM
     Indication: Product used for unknown indication
     Route: 048
  16. SulfamethoxazoleTrimethoprim [Concomitant]
     Indication: Product used for unknown indication
     Route: 048
  17. FERROUS SULFATE [Concomitant]
     Active Substance: FERROUS SULFATE
     Indication: Product used for unknown indication
     Route: 048
  18. BENZONATATE [Concomitant]
     Active Substance: BENZONATATE
     Indication: Product used for unknown indication

REACTIONS (3)
  - Pollakiuria [Recovering/Resolving]
  - Urinary tract disorder [Recovering/Resolving]
  - Cough [Recovering/Resolving]
